FAERS Safety Report 6453493-2 (Version None)
Quarter: 2009Q4

REPORT INFORMATION
  Report Type: 
  Country: None (occurrence: None)
  Receive Date: 20091124
  Receipt Date: 20091117
  Transmission Date: 20100525
  Serious: Yes (Hospitalization)
  Sender: FDA-Public Use
  Company Number: GB-ASTRAZENECA-2009SE27161

PATIENT
  Age: 27 Year
  Sex: Male

DRUGS (5)
  1. PROPOFOL [Suspect]
     Indication: ANAESTHESIA
     Route: 042
  2. FENTANYL-100 [Suspect]
     Indication: ANAESTHESIA
     Route: 042
  3. ISOFLURANE [Suspect]
     Indication: ANAESTHESIA
     Route: 055
  4. MIDAZOLAM HCL [Suspect]
     Indication: ANAESTHESIA
     Route: 042
  5. LIDOCAINE [Concomitant]
     Indication: NERVE BLOCK
     Route: 053

REACTIONS (11)
  - APHASIA [None]
  - APNOEIC ATTACK [None]
  - CHILLS [None]
  - HEADACHE [None]
  - HEMIPARESIS [None]
  - HYPERVENTILATION [None]
  - LOSS OF CONSCIOUSNESS [None]
  - MIGRAINE WITH AURA [None]
  - NAUSEA [None]
  - NECK PAIN [None]
  - RESPIRATORY ALKALOSIS [None]
